FAERS Safety Report 10812304 (Version 1)
Quarter: 2015Q1

REPORT INFORMATION
  Report Type: Spontaneous
  Country: US (occurrence: None)
  Receive Date: 20150213
  Receipt Date: 20150213
  Transmission Date: 20150721
  Serious: Yes (Hospitalization)
  Sender: FDA-Public Use
  Company Number: None

PATIENT
  Age: 67 Year
  Sex: Female
  Weight: 119.6 kg

DRUGS (5)
  1. WARFARIN [Suspect]
     Active Substance: WARFARIN
     Indication: ATRIAL FIBRILLATION
  2. DEXTROSE/HEPARIN [Suspect]
     Active Substance: DEXTROSE\HEPARIN
     Indication: ATRIAL FIBRILLATION
     Route: 042
     Dates: start: 20141218, end: 20141219
  3. WARFARIN [Suspect]
     Active Substance: WARFARIN
     Indication: DEEP VEIN THROMBOSIS
  4. DEXTROSE/HEPARIN [Suspect]
     Active Substance: DEXTROSE\HEPARIN
     Indication: DRUG THERAPY
     Route: 042
     Dates: start: 20141218, end: 20141219
  5. DEXTROSE/HEPARIN [Suspect]
     Active Substance: DEXTROSE\HEPARIN
     Indication: DEEP VEIN THROMBOSIS
     Route: 042
     Dates: start: 20141218, end: 20141219

REACTIONS (5)
  - Dyspnoea [None]
  - International normalised ratio decreased [None]
  - Activated partial thromboplastin time shortened [None]
  - Haematoma [None]
  - Haemoglobin decreased [None]

NARRATIVE: CASE EVENT DATE: 20141219
